FAERS Safety Report 11748986 (Version 3)
Quarter: 2016Q1

REPORT INFORMATION
  Report Type: Spontaneous
  Country: GB (occurrence: GB)
  Receive Date: 20151118
  Receipt Date: 20160101
  Transmission Date: 20160525
  Serious: Yes (Other)
  Sender: FDA-Public Use
  Company Number: GB-AMGEN-GBRSP2015121024

PATIENT
  Age: 55 Year
  Sex: Female

DRUGS (2)
  1. ENBREL [Suspect]
     Active Substance: ETANERCEPT
     Indication: RHEUMATOID ARTHRITIS
     Dosage: 50 MG, UNK
     Route: 065
     Dates: start: 20150807, end: 2015
  2. SULFASALAZINE. [Concomitant]
     Active Substance: SULFASALAZINE
     Dosage: 1 G, 2X/DAY

REACTIONS (8)
  - Lower respiratory tract infection [Unknown]
  - Haemoglobin decreased [Unknown]
  - Sinusitis [Unknown]
  - Dyspnoea [Unknown]
  - Ear infection [Unknown]
  - Oral infection [Unknown]
  - Lethargy [Unknown]
  - Infection [Unknown]

NARRATIVE: CASE EVENT DATE: 2015
